FAERS Safety Report 4378162-4 (Version None)
Quarter: 2004Q2

REPORT INFORMATION
  Report Type: 
  Country: None (occurrence: None)
  Receive Date: 20040609
  Receipt Date: 20040525
  Transmission Date: 20050107
  Serious: Yes (Hospitalization, Other)
  Sender: FDA-Public Use
  Company Number: 2004-06729

PATIENT
  Age: 30 Year
  Sex: Male
  Weight: 41 kg

DRUGS (5)
  1. VIREAD [Suspect]
     Indication: HIV INFECTION
     Dosage: 300 MG, 1 IN 1 D, ORAL
     Route: 048
     Dates: start: 20030901, end: 20040126
  2. DIDANOSINE (DIDANOSINE) [Suspect]
     Indication: HIV INFECTION
     Dosage: 250 MG, ONCE A DAY, ORAL
     Route: 048
     Dates: start: 20030901, end: 20040126
  3. ENFUVIRTIDE (ENFUVIRTIDE) [Concomitant]
  4. LOPINAVIR/RITONAVIR (KALETRA) [Concomitant]
  5. SAQUINAVIR (SAQUINAVIR) [Concomitant]

REACTIONS (6)
  - BLOOD BICARBONATE DECREASED [None]
  - BLOOD PHOSPHORUS DECREASED [None]
  - BLOOD POTASSIUM DECREASED [None]
  - CARDIOMYOPATHY [None]
  - RENAL IMPAIRMENT [None]
  - WEIGHT DECREASED [None]
